FAERS Safety Report 10411679 (Version 1)
Quarter: 2014Q3

REPORT INFORMATION
  Report Type: Report from Study
  Country: ZA (occurrence: ZA)
  Receive Date: 20140827
  Receipt Date: 20140827
  Transmission Date: 20150326
  Serious: Yes (Hospitalization, Other)
  Sender: FDA-Public Use
  Company Number: ZA-BAYER-2014-085291

PATIENT
  Sex: Male

DRUGS (6)
  1. EPILIM [Concomitant]
     Active Substance: VALPROATE SODIUM
  2. ECOTRIN [Concomitant]
     Active Substance: ASPIRIN
  3. CIPRALEX [Concomitant]
     Active Substance: ESCITALOPRAM OXALATE
  4. BETAFERON [Suspect]
     Active Substance: INTERFERON BETA-1B
     Dosage: 0.5 DOSE
     Dates: start: 20080311
  5. RAMIPRIL HEXAL [Concomitant]
     Active Substance: RAMIPRIL
  6. STILNOX [Concomitant]
     Active Substance: ZOLPIDEM TARTRATE

REACTIONS (14)
  - Prostatitis [None]
  - Fatigue [Recovering/Resolving]
  - Multiple sclerosis relapse [Recovering/Resolving]
  - Affect lability [None]
  - Prostate cancer [None]
  - Asthenia [Recovering/Resolving]
  - Headache [None]
  - Multiple sclerosis [None]
  - Pallor [None]
  - Influenza [None]
  - Loss of consciousness [None]
  - Injection site pain [None]
  - Hypersomnia [Recovering/Resolving]
  - Injection site pain [None]

NARRATIVE: CASE EVENT DATE: 2008
